FAERS Safety Report 7655484-2 (Version None)
Quarter: 2011Q3

REPORT INFORMATION
  Report Type: 
  Country: None (occurrence: None)
  Receive Date: 20110804
  Receipt Date: 20110727
  Transmission Date: 20111222
  Serious: Yes (Hospitalization)
  Sender: FDA-Public Use
  Company Number: AU-ASTELLAS-2011JP005175

PATIENT
  Sex: Male
  Weight: 50 kg

DRUGS (3)
  1. TACROLIMUS [Interacting]
     Route: 065
  2. COLISTIN SULFATE [Interacting]
     Dosage: 90 MG, TID
     Route: 041
     Dates: start: 20110201, end: 20110207
  3. TACROLIMUS [Suspect]
     Route: 065

REACTIONS (4)
  - MUSCLE TWITCHING [None]
  - DRUG INTERACTION [None]
  - RENAL FAILURE ACUTE [None]
  - TOXICITY TO VARIOUS AGENTS [None]
